FAERS Safety Report 10904274 (Version 1)
Quarter: 2015Q1

REPORT INFORMATION
  Report Type: Spontaneous
  Country: US (occurrence: None)
  Receive Date: 20150304
  Receipt Date: 20150304
  Transmission Date: 20150721
  Serious: Yes (Disabling)
  Sender: FDA-Public Use
  Company Number: None

PATIENT
  Age: 38 Year
  Sex: Male
  Weight: 108.86 kg

DRUGS (1)
  1. ORPHENADRINE CITRATE. [Suspect]
     Active Substance: ORPHENADRINE CITRATE
     Indication: BACK PAIN
     Route: 048

REACTIONS (3)
  - Product substitution issue [None]
  - Product quality issue [None]
  - Gynaecomastia [None]

NARRATIVE: CASE EVENT DATE: 20140513
